FAERS Safety Report 5403722-9 (Version None)
Quarter: 2007Q3

REPORT INFORMATION
  Report Type: 
  Country: None (occurrence: None)
  Receive Date: 20070802
  Receipt Date: 20070725
  Transmission Date: 20080115
  Serious: Yes (Other)
  Sender: FDA-Public Use
  Company Number: US-JNJFOC-20070601851

PATIENT
  Sex: Female
  Weight: 47.63 kg

DRUGS (4)
  1. LEVAQUIN [Suspect]
     Indication: URINARY TRACT INFECTION
     Route: 048
  2. NORVASC [Concomitant]
     Indication: HYPERTENSION
     Route: 065
  3. WELCHOL [Concomitant]
     Indication: BLOOD CHOLESTEROL
     Route: 065
  4. UNKNOWN MEDICATION [Concomitant]
     Indication: CARDIAC DISORDER
     Route: 065

REACTIONS (6)
  - BLINDNESS UNILATERAL [None]
  - DIZZINESS [None]
  - FALL [None]
  - HEADACHE [None]
  - MUSCULOSKELETAL PAIN [None]
  - VISION BLURRED [None]
